FAERS Safety Report 18119726 (Version 1)
Quarter: 2020Q3

REPORT INFORMATION
  Report Type: Spontaneous
  Country: CA (occurrence: CA)
  Receive Date: 20200806
  Receipt Date: 20200806
  Transmission Date: 20201103
  Serious: Yes (Other)
  Sender: FDA-Public Use
  Company Number: CA-PFIZER INC-2020289272

PATIENT
  Age: 46 Year
  Sex: Female

DRUGS (3)
  1. SOMAVERT [Suspect]
     Active Substance: PEGVISOMANT
     Dosage: 10 MG, DAILY
     Route: 058
     Dates: start: 20200109
  2. SOMAVERT [Suspect]
     Active Substance: PEGVISOMANT
     Indication: ACROMEGALY
     Dosage: 40 MG LOADING DOSE
     Route: 058
  3. SANDOSTATIN LAR DEPOT [Concomitant]
     Active Substance: OCTREOTIDE ACETATE
     Indication: HORMONE LEVEL ABNORMAL
     Dosage: 30 MG, EVERY 3 WEEKLY

REACTIONS (3)
  - Insulin-like growth factor increased [Unknown]
  - Product dose omission issue [Unknown]
  - Pituitary tumour [Unknown]

NARRATIVE: CASE EVENT DATE: 2020
